FAERS Safety Report 14710057 (Version 13)
Quarter: 2018Q3

REPORT INFORMATION
  Report Type: Report from Study
  Country: US (occurrence: US)
  Receive Date: 20180403
  Receipt Date: 20180831
  Transmission Date: 20181010
  Serious: Yes (Life-Threatening, Hospitalization)
  Sender: FDA-Public Use
  Company Number: US-PFIZER INC-2018128867

PATIENT
  Age: 65 Year
  Sex: Female
  Weight: 78.3 kg

DRUGS (12)
  1. SUNITINIB MALATE. [Suspect]
     Active Substance: SUNITINIB MALATE
     Dosage: 50 MG, (QD FOR 4 WEEKS AND THEN OFF TREATMENT FOR 2 WEEKS)
     Route: 048
     Dates: start: 20180227, end: 20180313
  2. IMODIUM [Concomitant]
     Active Substance: LOPERAMIDE HYDROCHLORIDE
     Dosage: 2 DF, UNK
     Dates: start: 20170418
  3. UREA. [Concomitant]
     Active Substance: UREA
     Dosage: 20 %, UNK
     Dates: start: 20170403
  4. MYLANTA [Concomitant]
     Active Substance: ALUMINUM HYDROXIDE\DIMETHICONE\MAGNESIUM HYDROXIDE
     Dosage: 2 DF, UNK
     Dates: start: 20170418
  5. LISINOPRIL. [Concomitant]
     Active Substance: LISINOPRIL
     Dosage: 10 MG, UNK
     Dates: start: 20170127
  6. TYLENOL [Concomitant]
     Active Substance: ACETAMINOPHEN
     Dosage: 325 MG, UNK
     Dates: start: 20170127
  7. LEVOTHYROXINE SODIUM. [Concomitant]
     Active Substance: LEVOTHYROXINE SODIUM
     Dosage: 75 UG, UNK
     Dates: start: 20180215
  8. AIRBORNE [Concomitant]
     Active Substance: HERBALS\MINERALS\VITAMINS
     Dosage: UNK
     Dates: start: 20160901
  9. HYDROCHLOROTHIAZIDE. [Concomitant]
     Active Substance: HYDROCHLOROTHIAZIDE
     Dosage: 12.5 MG, UNK
     Dates: start: 20170516, end: 20180319
  10. SUNITINIB MALATE. [Suspect]
     Active Substance: SUNITINIB MALATE
     Dosage: 37.5 MG, CYCLIC (QD FOR 4 WEEKS AND THEN OFF TREATMENT FOR 2 WEEKS)
     Route: 048
     Dates: start: 20180328, end: 20180401
  11. SUNITINIB MALATE. [Suspect]
     Active Substance: SUNITINIB MALATE
     Indication: RENAL CELL CARCINOMA
     Dosage: 50 MG, (ONCE DAILY (QD) FOR 4 WEEKS AND THEN OFF TREATMENT FOR 2 WEEKS)
     Route: 048
     Dates: start: 20161214, end: 20180225
  12. SUNITINIB MALATE. [Suspect]
     Active Substance: SUNITINIB MALATE
     Dosage: 37.5 MG, CYCLIC (QD FOR 4 WEEKS AND THEN OFF TREATMENT FOR 2 WEEKS)
     Route: 048
     Dates: start: 20180403

REACTIONS (1)
  - Hypokalaemia [Recovered/Resolved]

NARRATIVE: CASE EVENT DATE: 20180319
